FAERS Safety Report 17946988 (Version 2)
Quarter: 2020Q3

REPORT INFORMATION
  Report Type: Spontaneous
  Country: EG (occurrence: EG)
  Receive Date: 20200626
  Receipt Date: 20200708
  Transmission Date: 20201103
  Serious: Yes (Other)
  Sender: FDA-Public Use
  Company Number: EG-SUN PHARMACEUTICAL INDUSTRIES LTD-2020RR-251672

PATIENT
  Age: 57 Year
  Sex: Male

DRUGS (3)
  1. NILOTINIB [Suspect]
     Active Substance: NILOTINIB
     Indication: CHRONIC MYELOID LEUKAEMIA
     Dosage: 400 MILLIGRAM, BID
     Route: 065
  2. GLIVEC [Suspect]
     Active Substance: IMATINIB MESYLATE
     Indication: CHRONIC MYELOID LEUKAEMIA
     Dosage: 400 MILLIGRAM, 1ST LINE
     Route: 065
  3. SPRYCEL [Suspect]
     Active Substance: DASATINIB
     Indication: CHRONIC MYELOID LEUKAEMIA
     Dosage: 100 MILLIGRAM, UNK
     Route: 065

REACTIONS (6)
  - Diarrhoea [Unknown]
  - Therapeutic product effect incomplete [Unknown]
  - Abdominal pain [Unknown]
  - Pancytopenia [Unknown]
  - Vomiting [Unknown]
  - Disease progression [Unknown]
